FAERS Safety Report 15097402 (Version 1)
Quarter: 2018Q3

REPORT INFORMATION
  Report Type: Spontaneous
  Country: US (occurrence: US)
  Receive Date: 20180702
  Receipt Date: 20180702
  Transmission Date: 20181010
  Serious: No
  Sender: FDA-Public Use
  Company Number: US-TEVA-2018-US-910516

PATIENT
  Sex: Male

DRUGS (1)
  1. BUTAL/APAP/CAFF [Suspect]
     Active Substance: ACETAMINOPHEN\BUTABARBITAL\CAFFEINE
     Indication: MIGRAINE
     Dosage: 50 MG / 325 MG / 40 MG
     Route: 065

REACTIONS (2)
  - Drug ineffective [Unknown]
  - Therapy change [None]
